FAERS Safety Report 5676924-4 (Version None)
Quarter: 2008Q1

REPORT INFORMATION
  Report Type: 
  Country: None (occurrence: None)
  Receive Date: 20080324
  Receipt Date: 20080317
  Transmission Date: 20080703
  Serious: Yes (Hospitalization)
  Sender: FDA-Public Use
  Company Number: JP-BRISTOL-MYERS SQUIBB COMPANY-14026611

PATIENT
  Age: 58 Year
  Sex: Female

DRUGS (6)
  1. TAXOL [Suspect]
     Indication: UTERINE CANCER
     Dosage: DOSE-200 MG ON 06DEC07.
     Route: 041
     Dates: start: 20071108, end: 20071108
  2. CARBOMERCK [Suspect]
     Indication: UTERINE CANCER
     Dosage: DOSE-450 MG ON 06DEC07.
     Route: 041
     Dates: start: 20071108, end: 20071108
  3. GRAN [Suspect]
     Indication: WHITE BLOOD CELL COUNT DECREASED
     Route: 058
     Dates: start: 20071106, end: 20071118
  4. DECADRON [Concomitant]
     Route: 041
     Dates: start: 20071108, end: 20071108
  5. KYTRIL [Concomitant]
     Route: 041
     Dates: start: 20071108, end: 20071108
  6. VENA [Concomitant]
     Route: 048
     Dates: start: 20071108, end: 20071108

REACTIONS (1)
  - RHABDOMYOLYSIS [None]
